FAERS Safety Report 4546716-8 (Version None)
Quarter: 2005Q1

REPORT INFORMATION
  Report Type: 
  Country: None (occurrence: None)
  Receive Date: 20050105
  Receipt Date: 20041221
  Transmission Date: 20050727
  Serious: Yes (Disabling)
  Sender: FDA-Public Use
  Company Number: MK200412-0349-1

PATIENT
  Age: 64 Year
  Sex: Male

DRUGS (1)
  1. HEXABRIX [Suspect]
     Indication: CARDIAC VENTRICULOGRAM
     Dosage: SINGLE USE, IA
     Route: 013
     Dates: start: 20041217, end: 20041217

REACTIONS (1)
  - HEMIANOPIA HOMONYMOUS [None]
